FAERS Safety Report 7998438-9 (Version None)
Quarter: 2011Q4

REPORT INFORMATION
  Report Type: 
  Country: None (occurrence: None)
  Receive Date: 20111221
  Receipt Date: 20111024
  Transmission Date: 20120403
  Serious: No
  Sender: FDA-Public Use
  Company Number: US-GLAXOSMITHKLINE-A0950252A

PATIENT
  Age: 65 Year
  Sex: Female

DRUGS (6)
  1. GLUCOSAMINE CHONDRITIN [Concomitant]
  2. LISINOPRIL [Concomitant]
  3. LOVAZA [Suspect]
     Indication: BLOOD TRIGLYCERIDES INCREASED
     Dosage: 2G TWICE PER DAY
     Route: 048
     Dates: start: 20050101, end: 20111022
  4. METFORMIN HCL [Concomitant]
  5. METOPROLOL TARTRATE [Concomitant]
  6. ASPIRIN [Concomitant]

REACTIONS (3)
  - MALAISE [None]
  - PRODUCT QUALITY ISSUE [None]
  - NAUSEA [None]
